FAERS Safety Report 6816140-3 (Version None)
Quarter: 2010Q3

REPORT INFORMATION
  Report Type: 
  Country: None (occurrence: None)
  Receive Date: 20100702
  Receipt Date: 20100702
  Transmission Date: 20110219
  Serious: Yes (Life-Threatening)
  Sender: FDA-Public Use
  Company Number: None

PATIENT
  Age: 46 Year
  Sex: Female
  Weight: 46.2669 kg

DRUGS (2)
  1. YAZ [Suspect]
     Indication: PREMENSTRUAL SYNDROME
     Dosage: 1 DAILY PO
     Route: 048
     Dates: start: 20070701, end: 20071121
  2. HEPARIN [Concomitant]

REACTIONS (2)
  - ARTHRALGIA [None]
  - PULMONARY EMBOLISM [None]
